FAERS Safety Report 17006685 (Version 1)
Quarter: 2019Q4

REPORT INFORMATION
  Report Type: Spontaneous
  Country: US (occurrence: US)
  Receive Date: 20191107
  Receipt Date: 20191107
  Transmission Date: 20200122
  Serious: No
  Sender: FDA-Public Use
  Company Number: US-TARO-2019TAR00068

PATIENT
  Sex: Female

DRUGS (1)
  1. ENALAPRIL MALEATE AND HYDROCHLOROTHIAZIDE TABLETS USP 5/12.5MG [Suspect]
     Active Substance: ENALAPRIL MALEATE\HYDROCHLOROTHIAZIDE

REACTIONS (2)
  - Migraine [Recovered/Resolved]
  - Product substitution issue [Unknown]
